FAERS Safety Report 8029878-X (Version None)
Quarter: 2012Q1

REPORT INFORMATION
  Report Type: 
  Country: None (occurrence: None)
  Receive Date: 20120106
  Receipt Date: 20120106
  Transmission Date: 20120608
  Serious: Yes (Other)
  Sender: FDA-Public Use
  Company Number: None

PATIENT
  Age: 48 Year
  Sex: Male
  Weight: 119.296 kg

DRUGS (1)
  1. ALFUZOSIN HCL [Suspect]
     Indication: BENIGN PROSTATIC HYPERPLASIA
     Dosage: 10MG 1 DAILY BY MOUTH
     Route: 048
     Dates: start: 20111123, end: 20111223

REACTIONS (4)
  - DIZZINESS [None]
  - DISORIENTATION [None]
  - URINE ANALYSIS ABNORMAL [None]
  - URINE FLOW DECREASED [None]
